FAERS Safety Report 7302619-7 (Version None)
Quarter: 2011Q1

REPORT INFORMATION
  Report Type: 
  Country: None (occurrence: None)
  Receive Date: 20110218
  Receipt Date: 20110208
  Transmission Date: 20110831
  Serious: Yes (Death, Other)
  Sender: FDA-Public Use
  Company Number: DE-CELGENEUS-062-50794-10080718

PATIENT
  Age: 62 Year
  Sex: Male
  Weight: 127 kg

DRUGS (11)
  1. AMPHOTERICIN B [Concomitant]
     Route: 065
     Dates: start: 20100129
  2. VIDAZA [Suspect]
     Route: 058
     Dates: start: 20100211, end: 20100215
  3. DELIX [Concomitant]
     Route: 065
     Dates: start: 20100129, end: 20100216
  4. ALLOPURINOL [Concomitant]
     Route: 065
     Dates: start: 20100202, end: 20100215
  5. PANTOZOL [Concomitant]
     Route: 065
     Dates: start: 20100204, end: 20100310
  6. ETOPOSIDE [Concomitant]
     Route: 065
  7. ESIDRIX [Concomitant]
     Route: 065
     Dates: start: 20100203, end: 20100215
  8. IDARUBICIN [Concomitant]
     Route: 065
  9. LASIX [Concomitant]
     Route: 065
     Dates: start: 20100129, end: 20100224
  10. AMLODIPINE [Concomitant]
     Route: 065
     Dates: start: 20100129, end: 20100215
  11. TAVANIC [Concomitant]
     Route: 065
     Dates: start: 20100201, end: 20100216

REACTIONS (1)
  - BONE MARROW FAILURE [None]
